FAERS Safety Report 12575813 (Version 3)
Quarter: 2016Q3

REPORT INFORMATION
  Report Type: Other
  Country: US (occurrence: US)
  Receive Date: 20160720
  Receipt Date: 20160815
  Transmission Date: 20161109
  Serious: Yes (Other)
  Sender: FDA-Public Use
  Company Number: US-SHEFFIELD PHARMACEUTICALS, LLC-1055300

PATIENT
  Sex: Male

DRUGS (1)
  1. DR SHEFFIELD MUSCLE RUB CREAM [Suspect]
     Active Substance: MENTHOL\METHYL SALICYLATE
     Indication: DRUG HYPERSENSITIVITY
     Route: 061
     Dates: start: 20160108, end: 20160109

REACTIONS (1)
  - Blister [Not Recovered/Not Resolved]

NARRATIVE: CASE EVENT DATE: 20160109
